FAERS Safety Report 21654797 (Version 1)
Quarter: 2022Q4

REPORT INFORMATION
  Report Type: Spontaneous
  Country: US (occurrence: US)
  Receive Date: 20221129
  Receipt Date: 20221129
  Transmission Date: 20230113
  Serious: Yes (Hospitalization)
  Sender: FDA-Public Use
  Company Number: US-STRIDES ARCOLAB LIMITED-2021SP030612

PATIENT
  Age: 78 Year
  Sex: Male

DRUGS (6)
  1. GABAPENTIN [Suspect]
     Active Substance: GABAPENTIN
     Indication: Penile pain
     Dosage: 100 MILLIGRAM UNK
     Route: 065
  2. ACETAMINOPHEN [Suspect]
     Active Substance: ACETAMINOPHEN
     Indication: Penile pain
     Dosage: 650 MILLIGRAM UNK
     Route: 065
  3. HYDROMORPHONE [Suspect]
     Active Substance: HYDROMORPHONE
     Indication: Penile pain
     Dosage: 4 MILLIGRAM, QID
     Route: 065
  4. FENTANYL [Suspect]
     Active Substance: FENTANYL
     Indication: Penile pain
     Dosage: 50 MICROGRAM, EVERY 4 HRS (AS NEEDED)
     Route: 065
  5. MORPHINE [Suspect]
     Active Substance: MORPHINE
     Indication: Penile pain
     Dosage: 4 MILLIGRAM, UNK
     Route: 065
  6. TRAMADOL [Suspect]
     Active Substance: TRAMADOL
     Indication: Penile pain
     Dosage: 50 MILLIGRAM UNK
     Route: 065

REACTIONS (1)
  - Drug ineffective for unapproved indication [Unknown]
